FAERS Safety Report 14584243 (Version 2)
Quarter: 2018Q1

REPORT INFORMATION
  Report Type: Spontaneous
  Country: US (occurrence: US)
  Receive Date: 20180228
  Receipt Date: 20180318
  Transmission Date: 20180509
  Serious: Yes (Other)
  Sender: FDA-Public Use
  Company Number: US-BEH-2018088293

PATIENT
  Age: 42 Year
  Sex: Female
  Weight: 81.63 kg

DRUGS (1)
  1. HIZENTRA [Suspect]
     Active Substance: HUMAN IMMUNOGLOBULIN G
     Indication: PRODUCT USED FOR UNKNOWN INDICATION
     Dosage: 9 G, UNK
     Route: 065
     Dates: start: 201309

REACTIONS (1)
  - Hepatomegaly [Unknown]
